FAERS Safety Report 12298949 (Version 1)
Quarter: 2016Q2

REPORT INFORMATION
  Report Type: Report from Study
  Country: IT (occurrence: IT)
  Receive Date: 20160425
  Receipt Date: 20160425
  Transmission Date: 20160815
  Serious: Yes (Hospitalization)
  Sender: FDA-Public Use
  Company Number: IT-ROCHE-1745968

PATIENT
  Age: 80 Year
  Sex: Male

DRUGS (13)
  1. CARDICOR [Concomitant]
     Active Substance: BISOPROLOL
     Route: 065
  2. OBINUTUZUMAB [Suspect]
     Active Substance: OBINUTUZUMAB
     Indication: DIFFUSE LARGE B-CELL LYMPHOMA
     Route: 042
     Dates: start: 20160411
  3. ALLOPURINOL. [Concomitant]
     Active Substance: ALLOPURINOL
     Route: 065
     Dates: start: 20160408
  4. VALSARTAN. [Concomitant]
     Active Substance: VALSARTAN
     Route: 065
  5. DELTACORTENE [Concomitant]
     Active Substance: PREDNISONE
     Route: 065
     Dates: start: 20160412, end: 20160415
  6. ZARZIO [Concomitant]
     Active Substance: FILGRASTIM
     Route: 065
     Dates: start: 20160414
  7. PANTOPRAZOLE [Concomitant]
     Active Substance: PANTOPRAZOLE SODIUM
     Route: 065
     Dates: start: 20160408
  8. NISTATINA [Concomitant]
     Active Substance: NYSTATIN
     Route: 065
     Dates: start: 20160408
  9. DONEPEZIL. [Concomitant]
     Active Substance: DONEPEZIL
     Route: 065
  10. METFORMIN [Concomitant]
     Active Substance: METFORMIN HYDROCHLORIDE
     Route: 065
  11. LASIX [Concomitant]
     Active Substance: FUROSEMIDE
     Route: 065
  12. BACTRIM [Concomitant]
     Active Substance: SULFAMETHOXAZOLE\TRIMETHOPRIM
     Route: 065
     Dates: start: 20160413
  13. CLOREXIDINA [Concomitant]
     Route: 065
     Dates: start: 20160408

REACTIONS (2)
  - Chronic obstructive pulmonary disease [Not Recovered/Not Resolved]
  - Cardiac failure [Not Recovered/Not Resolved]

NARRATIVE: CASE EVENT DATE: 20160415
